FAERS Safety Report 6180237-4 (Version None)
Quarter: 2009Q2

REPORT INFORMATION
  Report Type: 
  Country: None (occurrence: None)
  Receive Date: 20090504
  Receipt Date: 20090422
  Transmission Date: 20091009
  Serious: Yes (Hospitalization)
  Sender: FDA-Public Use
  Company Number: 2009-01592

PATIENT
  Age: 71 Year
  Sex: Female

DRUGS (2)
  1. VELCADE [Suspect]
     Indication: MULTIPLE MYELOMA
     Dates: start: 20060901
  2. DEXAMETHASONE TAB [Suspect]
     Indication: MULTIPLE MYELOMA
     Dates: start: 20070301

REACTIONS (10)
  - BLOOD IMMUNOGLOBULIN A INCREASED [None]
  - DISEASE PROGRESSION [None]
  - FATIGUE [None]
  - HYPERGLYCAEMIA [None]
  - MULTIPLE MYELOMA [None]
  - NAUSEA [None]
  - NEUROPATHY PERIPHERAL [None]
  - OEDEMA [None]
  - VOMITING [None]
  - WEIGHT DECREASED [None]
